FAERS Safety Report 6233439-2 (Version None)
Quarter: 2009Q2

REPORT INFORMATION
  Report Type: 
  Country: None (occurrence: None)
  Receive Date: 20090617
  Receipt Date: 20090611
  Transmission Date: 20091009
  Serious: Yes (Other)
  Sender: FDA-Public Use
  Company Number: US-ABBOTT-09P-163-0579251-00

PATIENT
  Sex: Female
  Weight: 1.05 kg

DRUGS (4)
  1. KALETRA [Suspect]
     Indication: DRUG EXPOSURE DURING PREGNANCY
     Dosage: 800/200MG
     Route: 064
     Dates: start: 20090227
  2. TRUVADA [Concomitant]
     Indication: DRUG EXPOSURE DURING PREGNANCY
     Route: 064
     Dates: start: 20090227
  3. ZIDOVUDINE [Concomitant]
     Indication: DRUG EXPOSURE DURING PREGNANCY
     Dosage: 2 MG/KG/HR
     Route: 064
     Dates: start: 20090529, end: 20090529
  4. ZIDOVUDINE [Concomitant]
     Dosage: 1 MG/KG/HR
     Route: 064
     Dates: start: 20090529, end: 20090529

REACTIONS (1)
  - PREMATURE BABY [None]
